FAERS Safety Report 5200263-9 (Version None)
Quarter: 2007Q1

REPORT INFORMATION
  Report Type: 
  Country: None (occurrence: None)
  Receive Date: 20070105
  Receipt Date: 20061229
  Transmission Date: 20070707
  Serious: Yes (Other)
  Sender: FDA-Public Use
  Company Number: US-BOEHRINGER INGELHEIM PHARMACEUTICALS, INC.-2007-BP-00135PF

PATIENT
  Sex: Female
  Weight: 61.23 kg

DRUGS (11)
  1. SPIRIVA [Suspect]
     Indication: CHRONIC OBSTRUCTIVE PULMONARY DISEASE
     Route: 055
     Dates: start: 20040801
  2. CHANTIX [Suspect]
     Indication: SMOKING CESSATION THERAPY
     Dates: start: 20061201
  3. LOTREL [Concomitant]
  4. HYDROCHLOROTHIAZIDE [Concomitant]
  5. TOPROL-XL [Concomitant]
  6. LIPITOR [Concomitant]
  7. LOW DOSE ASPIRIN [Concomitant]
  8. MULTI-VITAMIN [Concomitant]
  9. AMBIEN CR [Concomitant]
  10. LUNESTA [Concomitant]
  11. XANAX [Concomitant]

REACTIONS (2)
  - BRONCHITIS CHRONIC [None]
  - DYSPNOEA [None]
